FAERS Safety Report 10398589 (Version 1)
Quarter: 2014Q3

REPORT INFORMATION
  Report Type: Spontaneous
  Country: FR (occurrence: FR)
  Receive Date: 20140821
  Receipt Date: 20140821
  Transmission Date: 20150326
  Serious: Yes (Hospitalization)
  Sender: FDA-Public Use
  Company Number: FR-009507513-1408FRA007078

PATIENT
  Sex: Female
  Weight: 53 kg

DRUGS (3)
  1. SOTALOL HYDROCHLORIDE. [Concomitant]
     Active Substance: SOTALOL HYDROCHLORIDE
  2. FLECAINE [Concomitant]
     Active Substance: FLECAINIDE
  3. EZETROL [Suspect]
     Active Substance: EZETIMIBE
     Indication: BLOOD CHOLESTEROL INCREASED
     Dosage: UNK
     Route: 048
     Dates: start: 2011

REACTIONS (9)
  - Muscular weakness [Unknown]
  - Myalgia [Unknown]
  - Peripheral swelling [Unknown]
  - Blood creatine phosphokinase increased [Unknown]
  - Gait disturbance [Unknown]
  - Hypertension [Unknown]
  - Vestibular ataxia [Unknown]
  - Fall [Unknown]
  - Dysphagia [Unknown]
